FAERS Safety Report 24824089 (Version 1)
Quarter: 2025Q1

REPORT INFORMATION
  Report Type: Report from Study
  Country: BE (occurrence: BE)
  Receive Date: 20250109
  Receipt Date: 20250109
  Transmission Date: 20250409
  Serious: Yes (Other)
  Sender: ALEXION PHARMACEUTICALS
  Company Number: BE-AstraZeneca-CH-00780752A

PATIENT

DRUGS (4)
  1. OSIMERTINIB [Suspect]
     Active Substance: OSIMERTINIB
     Indication: Non-small cell lung cancer stage IV
  2. OSIMERTINIB [Suspect]
     Active Substance: OSIMERTINIB
     Route: 048
  3. OSIMERTINIB [Suspect]
     Active Substance: OSIMERTINIB
  4. OSIMERTINIB [Suspect]
     Active Substance: OSIMERTINIB
     Route: 048

REACTIONS (1)
  - Ulcerative keratitis [Recovering/Resolving]
